FAERS Safety Report 6385223-7 (Version None)
Quarter: 2009Q4

REPORT INFORMATION
  Report Type: 
  Country: None (occurrence: None)
  Receive Date: 20091002
  Receipt Date: 20080929
  Transmission Date: 20100525
  Serious: No
  Sender: FDA-Public Use
  Company Number: US-ASTRAZENECA-2007UW12609

PATIENT
  Sex: Female
  Weight: 78.9 kg

DRUGS (4)
  1. ARIMIDEX [Suspect]
     Indication: BREAST CANCER
     Route: 048
     Dates: start: 20050401
  2. TYLENOL (CAPLET) [Concomitant]
  3. OSCAL [Concomitant]
  4. FOSAMAX [Concomitant]

REACTIONS (5)
  - ARTHRALGIA [None]
  - BLOOD PRESSURE INCREASED [None]
  - COUGH [None]
  - OROPHARYNGEAL PAIN [None]
  - SWELLING [None]
